FAERS Safety Report 6167255-7 (Version None)
Quarter: 2009Q2

REPORT INFORMATION
  Report Type: 
  Country: None (occurrence: None)
  Receive Date: 20090424
  Receipt Date: 20090416
  Transmission Date: 20091009
  Serious: Yes (Other)
  Sender: FDA-Public Use
  Company Number: JP-ELI_LILLY_AND_COMPANY-JP200904005093

PATIENT
  Age: 79 Year
  Sex: Male

DRUGS (3)
  1. HUMALOG MIX 50/50 [Suspect]
     Indication: DIABETES MELLITUS
     Route: 058
     Dates: start: 20090326, end: 20090416
  2. PENFILL 30R [Concomitant]
     Indication: DIABETES MELLITUS
     Route: 058
     Dates: end: 20090325
  3. PENFILL 30R [Concomitant]
     Route: 058
     Dates: start: 20090416

REACTIONS (2)
  - OEDEMA PERIPHERAL [None]
  - PLEURAL EFFUSION [None]
